FAERS Safety Report 5805921-0 (Version None)
Quarter: 2008Q3

REPORT INFORMATION
  Report Type: 
  Country: None (occurrence: None)
  Receive Date: 20080710
  Receipt Date: 20080707
  Transmission Date: 20090109
  Serious: Yes (Other)
  Sender: FDA-Public Use
  Company Number: US-ASTRAZENECA-2007UW23295

PATIENT
  Age: 20642 Day
  Sex: Female
  Weight: 59.1 kg

DRUGS (3)
  1. SEROQUEL [Suspect]
     Indication: BIPOLAR DISORDER
     Route: 048
     Dates: start: 20030101, end: 20030301
  2. SEROQUEL [Suspect]
     Route: 048
     Dates: start: 20060601
  3. ZYPREXA/SYMBYAX (OLANZAPINE) [Concomitant]
     Dates: start: 20000101

REACTIONS (7)
  - ANAEMIA [None]
  - BLOOD CHOLESTEROL INCREASED [None]
  - DIABETES MELLITUS [None]
  - MYOCARDIAL INFARCTION [None]
  - NEUROPATHY PERIPHERAL [None]
  - RENAL FAILURE [None]
  - TREMOR [None]
